FAERS Safety Report 23772609 (Version 1)
Quarter: 2024Q2

REPORT INFORMATION
  Report Type: Spontaneous
  Country: US (occurrence: None)
  Receive Date: 20240422
  Receipt Date: 20240422
  Transmission Date: 20240716
  Serious: No
  Sender: FDA-Public Use
  Company Number: None

PATIENT
  Sex: 0

DRUGS (2)
  1. PHENOBARBITAL [Suspect]
     Active Substance: PHENOBARBITAL
  2. VALPROATE [Suspect]
     Active Substance: VALPROIC ACID

REACTIONS (2)
  - Sedation [None]
  - Seizure [None]

NARRATIVE: CASE EVENT DATE: 20240419
